FAERS Safety Report 25952797 (Version 1)
Quarter: 2025Q4

REPORT INFORMATION
  Report Type: Spontaneous
  Country: US (occurrence: None)
  Receive Date: 20251022
  Receipt Date: 20251022
  Transmission Date: 20260118
  Serious: Yes (Disabling, Other)
  Sender: FDA-CTU
  Company Number: None

PATIENT
  Age: 32 Year
  Sex: Female
  Weight: 51.75 kg

DRUGS (12)
  1. BOTOX [Suspect]
     Active Substance: ONABOTULINUMTOXINA
     Indication: Migraine
     Dates: start: 20240723
  2. LEVOTHYROXINE [Concomitant]
     Active Substance: LEVOTHYROXINE
  3. LIOTHYRONINE SODIUM [Concomitant]
     Active Substance: LIOTHYRONINE SODIUM
  4. KETOTIFEN (none used at time of incident), [Concomitant]
  5. CROMOLYN ORAL [Concomitant]
  6. CROMOLYN NASAL [Concomitant]
  7. SINGULAIR [Concomitant]
     Active Substance: MONTELUKAST SODIUM
  8. MAGNESIUM [Concomitant]
     Active Substance: MAGNESIUM
  9. Spore based probiotics [Concomitant]
  10. Bit b/c/d/e [Concomitant]
  11. LYSINE [Concomitant]
     Active Substance: LYSINE
  12. LEVOCETIRIZINE [Concomitant]
     Active Substance: LEVOCETIRIZINE

REACTIONS (10)
  - Injection related reaction [None]
  - Nausea [None]
  - Dizziness [None]
  - Therapy non-responder [None]
  - Injection site swelling [None]
  - Injection site pain [None]
  - Injection site hypoaesthesia [None]
  - Injection site inflammation [None]
  - Muscle tightness [None]
  - Joint range of motion decreased [None]

NARRATIVE: CASE EVENT DATE: 20240723
